FAERS Safety Report 7450338 (Version 4)
Quarter: 2014Q3

REPORT INFORMATION
  Report Type: Spontaneous
  Country: US (occurrence: US)
  Receive Date: 20100701
  Receipt Date: 20140703
  Transmission Date: 20150326
  Serious: Yes (Other)
  Sender: FDA-Public Use
  Company Number: US-JNJFOC-20100502947

PATIENT
  Age: 45 Year
  Sex: Male

DRUGS (2)
  1. LEVAQUIN [Suspect]
     Active Substance: LEVOFLOXACIN
     Indication: DIVERTICULITIS
     Route: 048
     Dates: start: 20040926, end: 20040929
  2. LEVAQUIN [Suspect]
     Active Substance: LEVOFLOXACIN
     Indication: DIVERTICULITIS
     Route: 042

REACTIONS (3)
  - Meniscus injury [Recovering/Resolving]
  - Pain in extremity [Not Recovered/Not Resolved]
  - Tendonitis [Unknown]

NARRATIVE: CASE EVENT DATE: 200804
